FAERS Safety Report 18536986 (Version 1)
Quarter: 2020Q4

REPORT INFORMATION
  Report Type: Spontaneous
  Country: US (occurrence: US)
  Receive Date: 20201124
  Receipt Date: 20201124
  Transmission Date: 20210114
  Serious: Yes (Death, Life-Threatening, Hospitalization, Other)
  Sender: FDA-Public Use
  Company Number: US-SHILPA MEDICARE LIMITED-SML-US-2020-00656

PATIENT
  Age: 45 Year
  Sex: Female

DRUGS (1)
  1. GEMCITABINE, UNKNOWN [Suspect]
     Active Substance: GEMCITABINE
     Indication: CERVIX CARCINOMA RECURRENT
     Route: 065

REACTIONS (5)
  - Thrombotic microangiopathy [Fatal]
  - Haematuria [Fatal]
  - Proteinuria [Fatal]
  - Renal tubular necrosis [Fatal]
  - Acute kidney injury [Fatal]
